FAERS Safety Report 7296714-9 (Version None)
Quarter: 2011Q1

REPORT INFORMATION
  Report Type: 
  Country: None (occurrence: None)
  Receive Date: 20110216
  Receipt Date: 20110201
  Transmission Date: 20110831
  Serious: Yes (Death, Life-Threatening)
  Sender: FDA-Public Use
  Company Number: US-MYLANLABS-2011S1002332

PATIENT
  Age: 59 Year
  Sex: Female

DRUGS (4)
  1. CARMUSTINE [Suspect]
     Indication: MANTLE CELL LYMPHOMA STAGE IV
     Dosage: 570MG ON DAY -6
     Route: 042
  2. MELPHALAN [Suspect]
     Indication: MANTLE CELL LYMPHOMA STAGE IV
     Dosage: 265MG ON DAY -1
     Route: 042
  3. ETOPOSIDE [Suspect]
     Indication: MANTLE CELL LYMPHOMA STAGE IV
     Dosage: 190MG BID FOR 8 DOSES (DAY -5 TO -2)
     Route: 042
  4. CYTARABINE [Suspect]
     Indication: MANTLE CELL LYMPHOMA STAGE IV
     Dosage: 190MG BID FOR 8 DOSES (DAY -5 TO -2)
     Route: 042

REACTIONS (4)
  - PNEUMOTHORAX [None]
  - CARDIAC ARREST [None]
  - BRADYCARDIA [None]
  - TACHYCARDIA [None]
